FAERS Safety Report 6538752-7 (Version None)
Quarter: 2010Q1

REPORT INFORMATION
  Report Type: 
  Country: None (occurrence: None)
  Receive Date: 20100114
  Receipt Date: 20100114
  Transmission Date: 20100710
  Serious: No
  Sender: FDA-Public Use
  Company Number: None

PATIENT
  Age: 62 Year
  Sex: Male
  Weight: 83.6 kg

DRUGS (1)
  1. ZETIA [Suspect]
     Indication: BLOOD CHOLESTEROL
     Dosage: 10 MG ONE MOUTH
     Route: 048
     Dates: start: 20100106

REACTIONS (4)
  - ARTHRALGIA [None]
  - HYPOVENTILATION [None]
  - MYALGIA [None]
  - PAIN [None]
